FAERS Safety Report 5930418-7 (Version None)
Quarter: 2008Q4

REPORT INFORMATION
  Report Type: 
  Country: None (occurrence: None)
  Receive Date: 20081021
  Receipt Date: 20081009
  Transmission Date: 20090506
  Serious: Yes (Hospitalization, Other)
  Sender: FDA-Public Use
  Company Number: 2008BI024818

PATIENT
  Age: 57 Year
  Sex: Female

DRUGS (1)
  1. AVONEX [Suspect]
     Indication: MULTIPLE SCLEROSIS
     Dosage: 30 UG; QW; IM
     Route: 030
     Dates: start: 20051219

REACTIONS (4)
  - ACUTE MYOCARDIAL INFARCTION [None]
  - CONVULSION [None]
  - HAEMORRHAGIC EROSIVE GASTRITIS [None]
  - MYOCARDIAL INFARCTION [None]
